FAERS Safety Report 9500349 (Version 1)
Quarter: 2013Q1

REPORT INFORMATION
  Report Type: Spontaneous
  Country: US (occurrence: None)
  Receive Date: 20130107
  Receipt Date: 20130107
  Transmission Date: 20140127
  Serious: No
  Sender: FDA-Public Use
  Company Number: PHEH2012US017929

PATIENT
  Age: 32 Year
  Sex: Male

DRUGS (4)
  1. GILENYA (FTY) CAPUSLE 0.5MG [Suspect]
     Indication: MULTIPLE SCLEROSIS
     Route: 048
     Dates: start: 20120822, end: 20120912
  2. GABAPENTIN (GABPENTIN) [Concomitant]
  3. LARETA [Concomitant]
  4. ZOLOFT (SERTRALINE HYDROCHLORIDE) [Concomitant]

REACTIONS (6)
  - Influenza like illness [None]
  - Diarrhoea [None]
  - Sneezing [None]
  - Cough [None]
  - Headache [None]
  - Back pain [None]
